FAERS Safety Report 12342364 (Version 1)
Quarter: 2016Q2

REPORT INFORMATION
  Report Type: Spontaneous
  Country: GB (occurrence: GB)
  Receive Date: 20160506
  Receipt Date: 20160506
  Transmission Date: 20160815
  Serious: Yes (Hospitalization)
  Sender: FDA-Public Use
  Company Number: GB-PFIZER INC-2016241619

PATIENT
  Age: 35 Year
  Sex: Female

DRUGS (2)
  1. CHLORAMPHENICOL PALMITATE [Concomitant]
     Active Substance: CHLORAMPHENICOL PALMITATE
     Dosage: UNK
  2. VENLAFAXINE HCL [Suspect]
     Active Substance: VENLAFAXINE HYDROCHLORIDE
     Indication: DEPRESSION
     Dosage: 150 MG, 1X/DAY,  MORNING
     Route: 048
     Dates: start: 201602

REACTIONS (15)
  - Food aversion [Unknown]
  - Memory impairment [Unknown]
  - Gait disturbance [Unknown]
  - Fatigue [Unknown]
  - Apathy [Unknown]
  - Aphasia [Unknown]
  - Hyperhidrosis [Unknown]
  - Nausea [Unknown]
  - Eye pain [Unknown]
  - Dehydration [Unknown]
  - Disturbance in attention [Unknown]
  - Asthenia [Unknown]
  - Heart rate increased [Unknown]
  - Headache [Unknown]
  - Vomiting [Unknown]

NARRATIVE: CASE EVENT DATE: 2016
